FAERS Safety Report 7200011-7 (Version None)
Quarter: 2010Q4

REPORT INFORMATION
  Report Type: 
  Country: None (occurrence: None)
  Receive Date: 20101228
  Receipt Date: 20101214
  Transmission Date: 20110411
  Serious: Yes (Life-Threatening)
  Sender: FDA-Public Use
  Company Number: GXKR2010GB14151

PATIENT
  Age: 86 Year
  Sex: Female

DRUGS (7)
  1. WARFARIN SODIUM [Suspect]
     Indication: ATRIAL FIBRILLATION
     Dosage: UNK
     Route: 048
     Dates: end: 20101106
  2. ADALAT [Concomitant]
     Route: 065
  3. DIGOXIN [Concomitant]
     Route: 065
  4. GLICLAZIDE [Concomitant]
     Route: 065
  5. LEVOTHYROXINE SODIUM [Concomitant]
     Route: 065
  6. PIOGLITAZONE HYDROCHLORIDE [Concomitant]
     Route: 065
  7. SIMVASTATIN [Concomitant]
     Route: 065

REACTIONS (8)
  - ABDOMINAL PAIN UPPER [None]
  - ANAEMIA [None]
  - INTERNATIONAL NORMALISED RATIO INCREASED [None]
  - MELAENA [None]
  - MYOCARDIAL INFARCTION [None]
  - PALPITATIONS [None]
  - SYNCOPE [None]
  - TROPONIN INCREASED [None]
